FAERS Safety Report 18729364 (Version 1)
Quarter: 2021Q1

REPORT INFORMATION
  Report Type: Spontaneous
  Country: US (occurrence: US)
  Receive Date: 20210111
  Receipt Date: 20210111
  Transmission Date: 20210419
  Serious: Yes (Death)
  Sender: FDA-Public Use
  Company Number: None

PATIENT
  Sex: Female

DRUGS (1)
  1. HYDROXYUREA 500MG CAP [Suspect]
     Active Substance: HYDROXYUREA
     Indication: THROMBOCYTOSIS
     Route: 048
     Dates: start: 20170920

REACTIONS (1)
  - Death [None]
